FAERS Safety Report 21033489 (Version 1)
Quarter: 2022Q3

REPORT INFORMATION
  Report Type: Report from Study
  Country: FR (occurrence: FR)
  Receive Date: 20220701
  Receipt Date: 20220701
  Transmission Date: 20221026
  Serious: Yes (Hospitalization, Other)
  Sender: FDA-Public Use
  Company Number: FR-TAKEDA-FR202026114

PATIENT
  Age: 56 Year
  Sex: Male

DRUGS (10)
  1. TEDUGLUTIDE [Suspect]
     Active Substance: TEDUGLUTIDE
     Indication: Short-bowel syndrome
     Dosage: 3.16 MILLIGRAM, (0.05 MG/KG) AND 7 DOSES 1X/WEEK
     Route: 042
     Dates: start: 20181023
  2. TEDUGLUTIDE [Suspect]
     Active Substance: TEDUGLUTIDE
     Indication: Short-bowel syndrome
     Dosage: 3.16 MILLIGRAM, (0.05 MG/KG) AND 7 DOSES 1X/WEEK
     Route: 042
     Dates: start: 20181023
  3. TEDUGLUTIDE [Suspect]
     Active Substance: TEDUGLUTIDE
     Indication: Short-bowel syndrome
     Dosage: 3.16 MILLIGRAM, (0.05 MG/KG) AND 7 DOSES 1X/WEEK
     Route: 042
     Dates: start: 20181023
  4. TEDUGLUTIDE [Suspect]
     Active Substance: TEDUGLUTIDE
     Indication: Short-bowel syndrome
     Dosage: 3.16 MILLIGRAM, (0.05 MG/KG) AND 7 DOSES 1X/WEEK
     Route: 042
     Dates: start: 20181023
  5. GENTAMICIN [Concomitant]
     Active Substance: GENTAMICIN
     Indication: Pneumonia klebsiella
  6. GENTAMICIN [Concomitant]
     Active Substance: GENTAMICIN
     Indication: Device related sepsis
  7. CEFTRIAXONE SODIUM [Concomitant]
     Active Substance: CEFTRIAXONE SODIUM
     Indication: Pneumonia klebsiella
  8. CEFTRIAXONE SODIUM [Concomitant]
     Active Substance: CEFTRIAXONE SODIUM
     Indication: Device related sepsis
  9. RIFAXIMIN [Concomitant]
     Active Substance: RIFAXIMIN
     Indication: Disease complication
  10. MENADIONE [Concomitant]
     Active Substance: MENADIONE
     Indication: Vitamin supplementation

REACTIONS (1)
  - Vascular device infection [Recovered/Resolved]

NARRATIVE: CASE EVENT DATE: 20191217
